FAERS Safety Report 4504654-0 (Version None)
Quarter: 2004Q4

REPORT INFORMATION
  Report Type: 
  Country: None (occurrence: None)
  Receive Date: 20041116
  Receipt Date: 20041011
  Transmission Date: 20050328
  Serious: Yes (Hospitalization)
  Sender: FDA-Public Use
  Company Number: M2004.1651

PATIENT
  Age: 56 Year
  Sex: Male

DRUGS (2)
  1. BISOPROLOL, UNK, UNKNOWN MANUFACTURER [Suspect]
     Dosage: 2.5MG DAILY
  2. ATORVASTATIN (ATORVASTAIN, 10MG, DISCONTINUED AFTER ADVERSE EVENT) [Concomitant]

REACTIONS (13)
  - ALDOLASE INCREASED [None]
  - ASPARTATE AMINOTRANSFERASE INCREASED [None]
  - ASTHENIA [None]
  - BIOPSY MUSCLE ABNORMAL [None]
  - BLOOD CREATINE PHOSPHOKINASE INCREASED [None]
  - C-REACTIVE PROTEIN INCREASED [None]
  - DYSPHAGIA [None]
  - HAEMATOCRIT DECREASED [None]
  - HAEMOGLOBIN DECREASED [None]
  - MUSCLE NECROSIS [None]
  - MYOPATHY [None]
  - PARALYSIS FLACCID [None]
  - QUADRIPARESIS [None]
